FAERS Safety Report 7679780-8 (Version None)
Quarter: 2011Q3

REPORT INFORMATION
  Report Type: 
  Country: None (occurrence: None)
  Receive Date: 20110812
  Receipt Date: 20110801
  Transmission Date: 20111222
  Serious: Yes (Hospitalization)
  Sender: FDA-Public Use
  Company Number: US-JNJFOC-20110307697

PATIENT
  Sex: Male

DRUGS (4)
  1. REMICADE [Suspect]
     Route: 042
     Dates: start: 20080912
  2. REMICADE [Suspect]
     Indication: CROHN'S DISEASE
     Route: 042
     Dates: start: 20080718
  3. REMICADE [Suspect]
     Route: 042
     Dates: start: 20060831
  4. CIMZIA [Suspect]
     Indication: CROHN'S DISEASE
     Dates: start: 20081001

REACTIONS (4)
  - SWOLLEN TONGUE [None]
  - CROHN'S DISEASE [None]
  - VIRAL INFECTION [None]
  - ADVERSE DRUG REACTION [None]
